FAERS Safety Report 7808360-6 (Version None)
Quarter: 2011Q4

REPORT INFORMATION
  Report Type: 
  Country: None (occurrence: None)
  Receive Date: 20111007
  Receipt Date: 20110928
  Transmission Date: 20120403
  Serious: Yes (Other)
  Sender: FDA-Public Use
  Company Number: GER/GER/11/0021400

PATIENT
  Sex: Female

DRUGS (1)
  1. SERTRALINE HYDROCHLORIDE [Suspect]
     Indication: PRODUCT USED FOR UNKNOWN INDICATION
     Dosage: 50 MG, 1 IN 1 D, ORAL
     Route: 048
     Dates: start: 20110816

REACTIONS (6)
  - HEADACHE [None]
  - WEIGHT DECREASED [None]
  - MICTURITION URGENCY [None]
  - DIARRHOEA [None]
  - PANCREATITIS [None]
  - MUSCLE CONTRACTIONS INVOLUNTARY [None]
